FAERS Safety Report 11532007 (Version 4)
Quarter: 2016Q1

REPORT INFORMATION
  Report Type: Spontaneous
  Country: US (occurrence: US)
  Receive Date: 20150921
  Receipt Date: 20160308
  Transmission Date: 20160525
  Serious: Yes (Hospitalization, Other)
  Sender: FDA-Public Use
  Company Number: US-UNICHEM LABORATORIES LIMITED-UCM201509-000803

PATIENT
  Age: 33 Year
  Sex: Female
  Weight: 121.56 kg

DRUGS (10)
  1. SEROQUEL [Concomitant]
     Active Substance: QUETIAPINE FUMARATE
  2. SOMA [Concomitant]
     Active Substance: CARISOPRODOL
  3. ALDACTONE [Concomitant]
     Active Substance: SPIRONOLACTONE
  4. PROZAC [Concomitant]
     Active Substance: FLUOXETINE HYDROCHLORIDE
  5. HYDROCHLOROTHIAZIDE. [Suspect]
     Active Substance: HYDROCHLOROTHIAZIDE
     Indication: HYPERTENSION
     Dates: end: 20150821
  6. REMERON [Concomitant]
     Active Substance: MIRTAZAPINE
  7. DANTROLENE [Concomitant]
     Active Substance: DANTROLENE
  8. NORCO [Concomitant]
     Active Substance: ACETAMINOPHEN\HYDROCODONE BITARTRATE
  9. OMEPRAZOLE. [Concomitant]
     Active Substance: OMEPRAZOLE
  10. XANAX [Concomitant]
     Active Substance: ALPRAZOLAM

REACTIONS (6)
  - Joint swelling [Unknown]
  - Thrombosis [Unknown]
  - Gastric ulcer [Recovered/Resolved]
  - Deep vein thrombosis [Not Recovered/Not Resolved]
  - Peripheral swelling [Unknown]
  - Contusion [Unknown]

NARRATIVE: CASE EVENT DATE: 20140917
